FAERS Safety Report 18730267 (Version 2)
Quarter: 2021Q1

REPORT INFORMATION
  Report Type: Spontaneous
  Country: US (occurrence: US)
  Receive Date: 20210112
  Receipt Date: 20210113
  Transmission Date: 20210419
  Serious: Yes (Other)
  Sender: FDA-Public Use
  Company Number: US-PFIZER INC-2021011102

PATIENT
  Age: 71 Year
  Sex: Female

DRUGS (1)
  1. IBRANCE [Suspect]
     Active Substance: PALBOCICLIB
     Indication: BREAST CANCER
     Dosage: 125 MG, CYCLIC(ONE TABLET BY MOUTH DAILY FOR 3 WEEKS AND THEN OFF FOR A WEEK.)
     Route: 048
     Dates: start: 20201027

REACTIONS (2)
  - Mastitis [Recovered/Resolved]
  - White blood cell disorder [Unknown]
